FAERS Safety Report 10032457 (Version 1)
Quarter: 2014Q1

REPORT INFORMATION
  Report Type: Spontaneous
  Country: US (occurrence: US)
  Receive Date: 20140324
  Receipt Date: 20140324
  Transmission Date: 20141002
  Serious: No
  Sender: FDA-Public Use
  Company Number: US-009507513-1403USA000753

PATIENT
  Sex: Male

DRUGS (2)
  1. AFRIN SPRAY [Suspect]
     Indication: NASAL CONGESTION
     Dosage: 1-2 PUMPS, QD PRN
     Route: 045
     Dates: start: 201401
  2. ANTIMICROBIAL (UNSPECIFIED) [Concomitant]
     Indication: PRODUCT USED FOR UNKNOWN INDICATION
     Dosage: UNK, UNKNOWN

REACTIONS (3)
  - Chest discomfort [Unknown]
  - Rebound effect [Unknown]
  - Incorrect drug administration duration [Unknown]
